FAERS Safety Report 5326865-7 (Version None)
Quarter: 2007Q2

REPORT INFORMATION
  Report Type: 
  Country: None (occurrence: None)
  Receive Date: 20070511
  Receipt Date: 20070425
  Transmission Date: 20071010
  Serious: Yes (Hospitalization)
  Sender: FDA-Public Use
  Company Number: 155898ISR

PATIENT
  Age: 21 Year
  Sex: Male

DRUGS (2)
  1. VINCRISTINE [Suspect]
     Indication: ACUTE LYMPHOCYTIC LEUKAEMIA
     Dosage: 2 MG, 1 IN 1 WK
  2. POSACONAZOLE [Suspect]
     Indication: FEBRILE NEUTROPENIA
     Dosage: 800 MG (400 MG, 1 IN 12 HR)

REACTIONS (5)
  - CRYPTOGENIC ORGANISING PNEUMONIA [None]
  - DRUG INTERACTION [None]
  - FEBRILE NEUTROPENIA [None]
  - NEUROTOXICITY [None]
  - POLYNEUROPATHY [None]
